FAERS Safety Report 26084480 (Version 1)
Quarter: 2025Q4

REPORT INFORMATION
  Report Type: Spontaneous
  Country: CN (occurrence: CN)
  Receive Date: 20251124
  Receipt Date: 20251124
  Transmission Date: 20260117
  Serious: Yes (Other)
  Sender: ELI LILLY AND COMPANY
  Company Number: CN-ELI_LILLY_AND_COMPANY-CN202511023784

PATIENT
  Sex: Female

DRUGS (2)
  1. DONANEMAB [Suspect]
     Active Substance: DONANEMAB
     Indication: Dementia Alzheimer^s type
     Dosage: 700 MG, MONTHLY (1/M) (1ST INFUSION)
     Route: 041
     Dates: start: 202510
  2. DONANEMAB [Suspect]
     Active Substance: DONANEMAB
     Dosage: 700 MG, MONTHLY (1/M) (2ND INFUSION)
     Route: 041
     Dates: start: 20251118

REACTIONS (5)
  - Heart rate increased [Recovering/Resolving]
  - Oxygen saturation decreased [Recovered/Resolved]
  - Palpitations [Recovering/Resolving]
  - Chest discomfort [Recovering/Resolving]
  - Chills [Recovering/Resolving]

NARRATIVE: CASE EVENT DATE: 20251118
